FAERS Safety Report 10098573 (Version 1)
Quarter: 2014Q2

REPORT INFORMATION
  Report Type: Spontaneous
  Country: US (occurrence: US)
  Receive Date: 20140423
  Receipt Date: 20140423
  Transmission Date: 20141212
  Serious: No
  Sender: FDA-Public Use
  Company Number: US-009507513-1404USA004580

PATIENT
  Sex: Male

DRUGS (3)
  1. CLARITIN ORAL SOLUTION [Suspect]
     Indication: HYPERSENSITIVITY
     Dosage: UNK UNK, QAM
     Route: 048
  2. CLARITIN ORAL SOLUTION [Suspect]
     Indication: OCULAR HYPERAEMIA
  3. CLARITIN ORAL SOLUTION [Suspect]
     Indication: NASAL CONGESTION

REACTIONS (2)
  - Drug effect decreased [Unknown]
  - Drug effect delayed [Unknown]
